FAERS Safety Report 5327733-7 (Version None)
Quarter: 2007Q2

REPORT INFORMATION
  Report Type: 
  Country: None (occurrence: None)
  Receive Date: 20070517
  Receipt Date: 20070515
  Transmission Date: 20071010
  Serious: Yes (Hospitalization)
  Sender: FDA-Public Use
  Company Number: US-BRISTOL-MYERS SQUIBB COMPANY-13773940

PATIENT
  Age: 52 Year
  Sex: Male
  Weight: 94 kg

DRUGS (5)
  1. CETUXIMAB [Suspect]
     Indication: NEOPLASM MALIGNANT
     Dates: start: 20070430
  2. CISPLATIN [Suspect]
     Dates: start: 20070430, end: 20070430
  3. RADIATION THERAPY [Suspect]
     Indication: NEOPLASM MALIGNANT
     Dates: start: 20070508
  4. XANAX [Concomitant]
     Route: 048
  5. METHADONE HCL [Concomitant]

REACTIONS (2)
  - HAEMOGLOBIN [None]
  - HAEMORRHAGE [None]
